FAERS Safety Report 8877116 (Version 1)
Quarter: 2012Q4

REPORT INFORMATION
  Report Type: Spontaneous
  Country: US (occurrence: None)
  Receive Date: 20121101
  Receipt Date: 20121101
  Transmission Date: 20130627
  Serious: Yes (Other)
  Sender: FDA-Public Use
  Company Number: None

PATIENT
  Age: 63 Year
  Sex: Female

DRUGS (2)
  1. TORADOL [Suspect]
     Dates: start: 20120530, end: 20121005
  2. REGLAN [Suspect]
     Dates: start: 20120530, end: 20121005

REACTIONS (1)
  - Meningitis [None]
